FAERS Safety Report 5804849-X (Version None)
Quarter: 2008Q3

REPORT INFORMATION
  Report Type: 
  Country: None (occurrence: None)
  Receive Date: 20080709
  Receipt Date: 20080703
  Transmission Date: 20090109
  Serious: Yes (Hospitalization)
  Sender: FDA-Public Use
  Company Number: FR-PFIZER INC-2008055428

PATIENT
  Age: 50 Year
  Sex: Male

DRUGS (1)
  1. TAHOR [Suspect]

REACTIONS (2)
  - MUSCLE INJURY [None]
  - MYALGIA [None]
